FAERS Safety Report 9550762 (Version 1)
Quarter: 2013Q3

REPORT INFORMATION
  Report Type: Spontaneous
  Country: US (occurrence: US)
  Receive Date: 20130924
  Receipt Date: 20130924
  Transmission Date: 20140515
  Serious: No
  Sender: FDA-Public Use
  Company Number: US-SANOFI-AVENTIS-2013SA023690

PATIENT
  Age: 48 Year
  Sex: Female
  Weight: 68.95 kg

DRUGS (8)
  1. TERIFLUNOMIDE [Suspect]
     Indication: MULTIPLE SCLEROSIS
     Route: 048
     Dates: start: 20130303
  2. AMPYRA [Suspect]
     Route: 065
  3. LISINOPRIL [Concomitant]
     Indication: HYPERTENSION
     Dates: start: 2010
  4. DITROPAN XL [Concomitant]
     Indication: NEUROGENIC BLADDER
     Dates: start: 1993
  5. VITAMIN D3 [Concomitant]
     Indication: VITAMIN D DEFICIENCY
     Dates: start: 2011
  6. VITAMIN B12 [Concomitant]
     Indication: VITAMIN B12 DEFICIENCY
     Dosage: 1000 MCG SQ OR IM
     Route: 058
     Dates: start: 2010
  7. MULTIVITAMINS [Concomitant]
     Indication: VITAMIN SUPPLEMENTATION
  8. ZYRTEC [Concomitant]
     Indication: HYPERSENSITIVITY
     Dates: start: 2003

REACTIONS (10)
  - Cystitis [Recovered/Resolved]
  - Trigeminal neuralgia [Not Recovered/Not Resolved]
  - Irritable bowel syndrome [Not Recovered/Not Resolved]
  - Hypersensitivity [Unknown]
  - Urticaria [Unknown]
  - Discomfort [Unknown]
  - Restlessness [Unknown]
  - Insomnia [Unknown]
  - Blood pressure increased [Not Recovered/Not Resolved]
  - Paraesthesia [Recovered/Resolved]
